FAERS Safety Report 23366666 (Version 1)
Quarter: 2024Q1

REPORT INFORMATION
  Report Type: Spontaneous
  Country: US (occurrence: None)
  Receive Date: 20240104
  Receipt Date: 20240104
  Transmission Date: 20240409
  Serious: Yes (Life-Threatening)
  Sender: FDA-Public Use
  Company Number: None

PATIENT
  Age: 47 Year
  Sex: Female
  Weight: 67.1 kg

DRUGS (1)
  1. PACLITAXEL [Suspect]
     Active Substance: PACLITAXEL
     Route: 042

REACTIONS (4)
  - Flushing [None]
  - Feeling hot [None]
  - Hypoxia [None]
  - Infusion related reaction [None]

NARRATIVE: CASE EVENT DATE: 20240103
